FAERS Safety Report 5678695-4 (Version None)
Quarter: 2008Q1

REPORT INFORMATION
  Report Type: 
  Country: None (occurrence: None)
  Receive Date: 20080321
  Receipt Date: 20080311
  Transmission Date: 20080703
  Serious: Yes (Hospitalization)
  Sender: FDA-Public Use
  Company Number: 232419J08USA

PATIENT
  Age: 24 Year
  Sex: Male

DRUGS (3)
  1. REBIF [Suspect]
     Indication: MULTIPLE SCLEROSIS
     Dosage: 44 MCG, 3 IN 1 WEEKS, SUBCUTANEOUS
     Route: 058
     Dates: start: 20071228, end: 20080101
  2. ADVAIR (SERETIDE) [Concomitant]
  3. ALBUTEROL INHALER (SALBUTAMOL /00139501/) [Concomitant]

REACTIONS (2)
  - BLINDNESS [None]
  - NEUROMYELITIS OPTICA [None]
